FAERS Safety Report 7465322-9 (Version None)
Quarter: 2011Q2

REPORT INFORMATION
  Report Type: 
  Country: None (occurrence: None)
  Receive Date: 20110509
  Receipt Date: 20110427
  Transmission Date: 20111010
  Serious: Yes (Other)
  Sender: FDA-Public Use
  Company Number: FR-BRISTOL-MYERS SQUIBB COMPANY-15704729

PATIENT

DRUGS (1)
  1. ORENCIA [Suspect]
     Dosage: NO OF INF: 1

REACTIONS (1)
  - AGRANULOCYTOSIS [None]
